FAERS Safety Report 21535936 (Version 1)
Quarter: 2022Q4

REPORT INFORMATION
  Report Type: Spontaneous
  Country: US (occurrence: None)
  Receive Date: 20221031
  Receipt Date: 20221031
  Transmission Date: 20230112
  Serious: Yes (Life-Threatening, Hospitalization)
  Sender: FDA-Public Use
  Company Number: None

PATIENT

DRUGS (1)
  1. CARVEDILOL [Suspect]
     Active Substance: CARVEDILOL

REACTIONS (3)
  - Adverse drug reaction [None]
  - Bradycardia [None]
  - Cardio-respiratory arrest [None]

NARRATIVE: CASE EVENT DATE: 20210303
